FAERS Safety Report 8476054-2 (Version None)
Quarter: 2012Q2

REPORT INFORMATION
  Report Type: 
  Country: None (occurrence: None)
  Receive Date: 20120628
  Receipt Date: 20120618
  Transmission Date: 20120825
  Serious: Yes (Hospitalization)
  Sender: FDA-Public Use
  Company Number: FR-BRISTOL-MYERS SQUIBB COMPANY-16699613

PATIENT
  Age: 61 Year
  Sex: Female

DRUGS (11)
  1. PLAVIX [Suspect]
     Indication: MITRAL VALVE DISEASE
     Dosage: 1 FILM-COATED TABLET
     Route: 048
  2. ATORVASTATIN [Suspect]
     Dosage: ) 1 FILM-COATED TABLET
     Route: 048
  3. PANTOPRAZOLE [Concomitant]
  4. FLUTICASONE PROPIONATE/SALMETEROL [Concomitant]
     Route: 055
  5. COUMADIN [Suspect]
     Indication: MITRAL VALVE DISEASE
     Route: 048
     Dates: end: 20120419
  6. LASIX [Concomitant]
     Dosage: 1 SCORED TABLET
  7. LANTUS [Concomitant]
     Indication: TYPE 1 DIABETES MELLITUS
     Route: 058
  8. RYTHMOL [Concomitant]
     Indication: ATRIAL FIBRILLATION
     Dosage: 1 FILM-COATED AND SCORED TABLET
  9. LEXOMIL [Concomitant]
     Dosage: 1DF=0.25
  10. VALSARTAN [Concomitant]
     Dosage: 1 CAPSULE
  11. VENTOLIN [Concomitant]
     Route: 055

REACTIONS (4)
  - GASTROINTESTINAL HAEMORRHAGE [None]
  - MELAENA [None]
  - INTESTINAL POLYP [None]
  - RED BLOOD CELL COUNT DECREASED [None]
